FAERS Safety Report 8880238 (Version 4)
Quarter: 2013Q3

REPORT INFORMATION
  Report Type: Spontaneous
  Country: US (occurrence: US)
  Receive Date: 20121101
  Receipt Date: 20130807
  Transmission Date: 20140515
  Serious: Yes (Death, Hospitalization, Other)
  Sender: FDA-Public Use
  Company Number: PHEH2005US014211

PATIENT
  Age: 59 Year
  Sex: Female
  Weight: 90.7 kg

DRUGS (19)
  1. AREDIA [Suspect]
     Indication: PROPHYLAXIS
     Dosage: 90 MG, QMO
     Route: 042
     Dates: start: 20000807, end: 20020107
  2. ZOMETA [Suspect]
     Indication: PROPHYLAXIS
     Dosage: 4 MG, QMO
     Route: 042
     Dates: start: 20020129, end: 20020814
  3. FLUOROURACIL [Concomitant]
     Indication: BREAST CANCER
  4. ADRIAMYCIN [Concomitant]
     Indication: BREAST CANCER
  5. CYCLOPHOSPHAMIDE [Concomitant]
     Indication: BREAST CANCER
  6. ARIMIDEX [Concomitant]
     Indication: BREAST CANCER
  7. XELODA [Concomitant]
     Indication: BREAST CANCER
  8. FASLODEX [Concomitant]
     Indication: BREAST CANCER
  9. PRINIVIL [Concomitant]
  10. COUMADIN [Concomitant]
  11. METOPROLOL [Concomitant]
     Dosage: 50 MG, QD
  12. PREVACID [Concomitant]
  13. LORAZEPAM [Concomitant]
     Dosage: 5 MG, UNK
  14. LORAZEPAM [Concomitant]
     Dosage: 1 MG, TID
     Route: 048
  15. ZESTRIL [Concomitant]
  16. ZOFRAN [Concomitant]
  17. TAXOL [Concomitant]
  18. IRESSA [Concomitant]
  19. PROZAC [Concomitant]
     Dosage: 20 MG, BID

REACTIONS (91)
  - Death [Fatal]
  - Abdominal pain [Unknown]
  - Liver disorder [Unknown]
  - Osteonecrosis of jaw [Unknown]
  - Swelling [Unknown]
  - Oral disorder [Unknown]
  - Inflammation [Unknown]
  - Abscess [Unknown]
  - Osteomyelitis [Unknown]
  - Feeling abnormal [Unknown]
  - Weight decreased [Unknown]
  - Decreased appetite [Recovering/Resolving]
  - Oral pain [Unknown]
  - Wound [Unknown]
  - Dehydration [Unknown]
  - Fistula [Unknown]
  - Insomnia [Unknown]
  - Pathological fracture [Unknown]
  - Cellulitis [Recovered/Resolved]
  - Faecaloma [Unknown]
  - Dental caries [Unknown]
  - Constipation [Unknown]
  - Depression [Recovering/Resolving]
  - Purulence [Unknown]
  - Erythema [Unknown]
  - Facial pain [Unknown]
  - Renal failure [Recovered/Resolved]
  - Blood creatinine increased [Recovered/Resolved]
  - Blood urea increased [Unknown]
  - Renal failure chronic [Unknown]
  - Anaemia of chronic disease [Unknown]
  - Hyperkalaemia [Recovered/Resolved]
  - Malignant neoplasm progression [Unknown]
  - Ascites [Unknown]
  - Pain [Recovering/Resolving]
  - Endocarditis [Unknown]
  - Cardiac murmur [Unknown]
  - Pyrexia [Recovered/Resolved]
  - Leukocytosis [Recovered/Resolved]
  - Abdominal discomfort [Unknown]
  - Mucosal inflammation [Recovered/Resolved]
  - Oral candidiasis [Recovered/Resolved]
  - Hypophagia [Not Recovered/Not Resolved]
  - Escherichia bacteraemia [Unknown]
  - Asthenia [Not Recovered/Not Resolved]
  - Periodontal disease [Unknown]
  - Neutropenia [Unknown]
  - Skin ulcer [Recovering/Resolving]
  - Left ventricular hypertrophy [Unknown]
  - Cardiomegaly [Unknown]
  - Hyponatraemia [Unknown]
  - Hypocalcaemia [Unknown]
  - Hypoalbuminaemia [Unknown]
  - Diarrhoea [Unknown]
  - Back pain [Unknown]
  - Haemangioma of liver [Unknown]
  - Urinary tract infection [Unknown]
  - Scoliosis [Unknown]
  - Oesophagitis [Unknown]
  - Ileus paralytic [Unknown]
  - Malignant peritoneal neoplasm [Unknown]
  - Decubitus ulcer [Unknown]
  - Hepatomegaly [Unknown]
  - Metastases to pleura [Unknown]
  - Chills [Unknown]
  - Malaise [Unknown]
  - Renal cyst [Unknown]
  - Pulmonary mass [Unknown]
  - Spinal osteoarthritis [Unknown]
  - Ovarian cyst [Unknown]
  - Ovarian disorder [Unknown]
  - Pain in jaw [Unknown]
  - Paraesthesia [Unknown]
  - Jaw cyst [Unknown]
  - Gastrooesophageal reflux disease [Unknown]
  - Urinary retention [Unknown]
  - Deep vein thrombosis [Unknown]
  - Aortic arteriosclerosis [Unknown]
  - Left atrial dilatation [Unknown]
  - Mitral valve incompetence [Unknown]
  - Tricuspid valve incompetence [Unknown]
  - Pulmonary hypertension [Unknown]
  - Osteoporosis [Unknown]
  - Sepsis [Unknown]
  - Anaemia [Unknown]
  - Enterocolitis [Unknown]
  - Ulcer [Unknown]
  - Metastases to ovary [Unknown]
  - Bone loss [Unknown]
  - Cerebral small vessel ischaemic disease [Unknown]
  - Atelectasis [Unknown]
